FAERS Safety Report 5240093-5 (Version None)
Quarter: 2007Q1

REPORT INFORMATION
  Report Type: 
  Country: None (occurrence: None)
  Receive Date: 20070216
  Receipt Date: 20070205
  Transmission Date: 20070707
  Serious: Yes (Death, Other)
  Sender: FDA-Public Use
  Company Number: US-PFIZER INC-2007010372

PATIENT
  Age: 49 Year
  Sex: Female

DRUGS (1)
  1. BEXTRA [Suspect]

REACTIONS (1)
  - PULMONARY EMBOLISM [None]
